FAERS Safety Report 25681790 (Version 1)
Quarter: 2025Q3

REPORT INFORMATION
  Report Type: Spontaneous
  Country: US (occurrence: None)
  Receive Date: 20250813
  Receipt Date: 20250813
  Transmission Date: 20251021
  Serious: No
  Sender: FDA-CTU
  Company Number: None

PATIENT
  Age: 31 Year
  Sex: Female

DRUGS (1)
  1. GOMEKLI [Suspect]
     Active Substance: MIRDAMETINIB

REACTIONS (7)
  - Alopecia [None]
  - Swelling of eyelid [None]
  - Periorbital swelling [None]
  - Eye pain [None]
  - Eye irritation [None]
  - Rash [None]
  - Rash [None]

NARRATIVE: CASE EVENT DATE: 20250813
